FAERS Safety Report 19118942 (Version 3)
Quarter: 2021Q2

REPORT INFORMATION
  Report Type: Spontaneous
  Country: US (occurrence: US)
  Receive Date: 20210410
  Receipt Date: 20210618
  Transmission Date: 20210717
  Serious: No
  Sender: FDA-Public Use
  Company Number: US-ORGANON-O2104USA000467

PATIENT
  Age: 47 Year
  Sex: Female
  Weight: 85.71 kg

DRUGS (3)
  1. NEXPLANON [Suspect]
     Active Substance: ETONOGESTREL
     Dosage: 1 DOSAGE FORM (IMPLANT)
     Route: 059
     Dates: start: 20210520
  2. NORVASC [Suspect]
     Active Substance: AMLODIPINE BESYLATE
     Dosage: 2.5 MILLIGRAM DAILY
     Route: 048
  3. NEXPLANON [Suspect]
     Active Substance: ETONOGESTREL
     Dosage: ONE EVERY 3 YEARS IN LEFT ARM
     Route: 059
     Dates: start: 20200611, end: 20210520

REACTIONS (5)
  - Intermenstrual bleeding [Unknown]
  - Discomfort [Unknown]
  - Device kink [Recovered/Resolved]
  - Menstrual disorder [Unknown]
  - Device breakage [Recovered/Resolved]

NARRATIVE: CASE EVENT DATE: 202103
